FAERS Safety Report 10051369 (Version 3)
Quarter: 2014Q2

REPORT INFORMATION
  Report Type: Spontaneous
  Country: US (occurrence: US)
  Receive Date: 20140401
  Receipt Date: 20140521
  Transmission Date: 20141212
  Serious: No
  Sender: FDA-Public Use
  Company Number: US-PFIZER INC-2014088810

PATIENT
  Sex: Female

DRUGS (1)
  1. ALAVERT D-12 HOUR ALLERGY + SINUS [Suspect]
     Dosage: UNK, ONCE
     Dates: start: 20140325, end: 20140325

REACTIONS (2)
  - Glossodynia [Unknown]
  - Product taste abnormal [Unknown]
